FAERS Safety Report 4616465-6 (Version None)
Quarter: 2005Q1

REPORT INFORMATION
  Report Type: 
  Country: None (occurrence: None)
  Receive Date: 20050318
  Receipt Date: 20050302
  Transmission Date: 20050727
  Serious: Yes (Death)
  Sender: FDA-Public Use
  Company Number: L04-USA-07403-41

PATIENT
  Sex: Female

DRUGS (9)
  1. THEOPHYLLINE [Suspect]
  2. ACETAMINOPHEN WITH PROPOXYPHENE HCL TAB [Suspect]
  3. MIRTAZAPINE [Suspect]
  4. SERTRALINE [Suspect]
  5. QUETIAPINE [Suspect]
  6. DOXYCYCLINE [Suspect]
  7. LANSOPRAZOLE [Suspect]
  8. LABETALOL [Suspect]
  9. PROCHLORPERAZINE [Suspect]

REACTIONS (7)
  - COMPLETED SUICIDE [None]
  - HYPOTENSION [None]
  - INTENTIONAL MISUSE [None]
  - PNEUMONIA [None]
  - PYREXIA [None]
  - SEPTIC SHOCK [None]
  - TACHYCARDIA [None]
